FAERS Safety Report 6783510-1 (Version None)
Quarter: 2010Q2

REPORT INFORMATION
  Report Type: 
  Country: None (occurrence: None)
  Receive Date: 20100622
  Receipt Date: 20100611
  Transmission Date: 20101027
  Serious: Yes (Other)
  Sender: FDA-Public Use
  Company Number: PHHY2010BR37991

PATIENT
  Age: 62 Year
  Sex: Female
  Weight: 76 kg

DRUGS (2)
  1. PARLODEL [Suspect]
     Indication: BLOOD PROLACTIN INCREASED
     Dosage: 1 TABLET (2.5 MG) DAILY
     Dates: start: 19980101
  2. DIOVAN HCT [Suspect]
     Indication: HYPERTENSION
     Dosage: 1 TABLET (160/12.5 MG)
     Dates: start: 20080101

REACTIONS (10)
  - ANAEMIA [None]
  - BLOOD PRESSURE INCREASED [None]
  - DERMATITIS [None]
  - DRUG DOSE OMISSION [None]
  - EMOTIONAL DISORDER [None]
  - FUNGAL INFECTION [None]
  - HERNIA PAIN [None]
  - NAIL DISCOLOURATION [None]
  - SKIN DISCOLOURATION [None]
  - UMBILICAL HERNIA [None]
